FAERS Safety Report 6186180-9 (Version None)
Quarter: 2009Q2

REPORT INFORMATION
  Report Type: 
  Country: None (occurrence: None)
  Receive Date: 20090511
  Receipt Date: 20090429
  Transmission Date: 20091009
  Serious: Yes (Other)
  Sender: FDA-Public Use
  Company Number: FI-PFIZER INC-2009206129

PATIENT
  Age: 28 Year

DRUGS (3)
  1. LYRICA [Suspect]
     Indication: DRUG WITHDRAWAL SYNDROME
     Dosage: 75 MG, 2X/DAY
     Route: 048
     Dates: start: 20090101, end: 20090101
  2. CITALOPRAM HYDROBROMIDE [Concomitant]
  3. MEDIPAM [Concomitant]

REACTIONS (1)
  - MUSCLE RIGIDITY [None]
